FAERS Safety Report 4814115-7 (Version None)
Quarter: 2005Q4

REPORT INFORMATION
  Report Type: 
  Country: None (occurrence: None)
  Receive Date: 20051028
  Receipt Date: 20050701
  Transmission Date: 20060501
  Serious: No
  Sender: FDA-Public Use
  Company Number: US-GLAXOSMITHKLINE-A0564842A

PATIENT
  Age: 85 Year
  Sex: Female

DRUGS (12)
  1. ADVAIR DISKUS 100/50 [Suspect]
     Indication: ASTHMA
     Dosage: 1PUFF TWICE PER DAY
     Route: 055
     Dates: start: 20050627, end: 20050627
  2. NASONEX [Concomitant]
  3. SINGULAIR [Concomitant]
  4. FLONASE [Concomitant]
  5. HUMIBID [Concomitant]
  6. CARDIZEM [Concomitant]
  7. AVAPRO [Concomitant]
  8. ISOSORBID [Concomitant]
  9. NORVASC [Concomitant]
  10. DEMADEX [Concomitant]
  11. NEURONTIN [Concomitant]
  12. MOBIC [Concomitant]

REACTIONS (13)
  - ANOREXIA [None]
  - BLOOD PRESSURE INCREASED [None]
  - CHEST DISCOMFORT [None]
  - CHEST PAIN [None]
  - COUGH [None]
  - DYSGEUSIA [None]
  - DYSPNOEA [None]
  - EAR CONGESTION [None]
  - HEART RATE INCREASED [None]
  - IRRITABILITY [None]
  - MUCOUS MEMBRANE DISORDER [None]
  - OVERDOSE [None]
  - UPPER RESPIRATORY TRACT CONGESTION [None]
